FAERS Safety Report 16478316 (Version 1)
Quarter: 2019Q2

REPORT INFORMATION
  Report Type: Spontaneous
  Country: US (occurrence: US)
  Receive Date: 20190626
  Receipt Date: 20190626
  Transmission Date: 20190711
  Serious: No
  Sender: FDA-Public Use
  Company Number: US-EMD SERONO-9096201

PATIENT
  Sex: Male

DRUGS (2)
  1. REBIF [Suspect]
     Active Substance: INTERFERON BETA-1A
     Indication: MULTIPLE SCLEROSIS
     Route: 058
     Dates: start: 20071022
  2. REBIF [Suspect]
     Active Substance: INTERFERON BETA-1A
     Route: 058
     Dates: start: 20161104

REACTIONS (4)
  - Fatigue [Unknown]
  - Injection site erythema [Unknown]
  - Feeling abnormal [Unknown]
  - Influenza like illness [Unknown]
